FAERS Safety Report 25277701 (Version 2)
Quarter: 2025Q2

REPORT INFORMATION
  Report Type: Spontaneous
  Country: JP (occurrence: JP)
  Receive Date: 20250507
  Receipt Date: 20250522
  Transmission Date: 20250717
  Serious: Yes (Death, Other)
  Sender: HEYL CHEMISCH PHARTMAZEUTISCHE FABRIK
  Company Number: JP-Heyl Chemisch-pharmazeutische Fabrik-2176319

PATIENT
  Age: 60 Year
  Sex: Male
  Weight: 57.9 kg

DRUGS (5)
  1. RADIOGARDASE [Suspect]
     Active Substance: FERRIC FERROCYANIDE
     Indication: Chemical poisoning
     Dates: start: 20250123, end: 20250202
  2. Magcorol (Magnesium citrate) [Concomitant]
     Dates: start: 20250121
  3. ACTIVATED CHARCOAL [Concomitant]
     Active Substance: ACTIVATED CHARCOAL
     Dates: start: 20250121
  4. SODIUM PICOSULFATE [Concomitant]
     Active Substance: SODIUM PICOSULFATE
     Dates: start: 20250121
  5. BISACODYL [Concomitant]
     Active Substance: BISACODYL
     Dates: start: 20250121

REACTIONS (4)
  - Hypokalaemia [Recovered/Resolved]
  - Altered state of consciousness [Unknown]
  - Hypernatraemia [Unknown]
  - Seizure [Fatal]

NARRATIVE: CASE EVENT DATE: 20250126
